FAERS Safety Report 5375196-8 (Version None)
Quarter: 2007Q2

REPORT INFORMATION
  Report Type: 
  Country: None (occurrence: None)
  Receive Date: 20070629
  Receipt Date: 20070621
  Transmission Date: 20071010
  Serious: Yes (Hospitalization)
  Sender: FDA-Public Use
  Company Number: CH-ASTRAZENECA-2007PK01270

PATIENT
  Age: 73 Year
  Sex: Female

DRUGS (4)
  1. BELOC ZOK [Suspect]
     Indication: ATRIAL FIBRILLATION
     Route: 048
     Dates: start: 20070515
  2. CLEXANE [Concomitant]
     Indication: PROPHYLAXIS
     Route: 058
  3. GLUCOPHAGE [Concomitant]
     Indication: DIABETES MELLITUS NON-INSULIN-DEPENDENT
     Route: 048
  4. NORVASC [Concomitant]
     Route: 048

REACTIONS (5)
  - ASPIRATION BRONCHIAL [None]
  - ATRIAL FIBRILLATION [None]
  - CARDIAC FAILURE [None]
  - DRUG INEFFECTIVE [None]
  - HYPERTENSIVE CRISIS [None]
